FAERS Safety Report 21549372 (Version 1)
Quarter: 2022Q4

REPORT INFORMATION
  Report Type: Other
  Country: GB (occurrence: GB)
  Receive Date: 20221103
  Receipt Date: 20221103
  Transmission Date: 20230112
  Serious: No
  Sender: FDA-Public Use
  Company Number: GB-MHRA-MED-202210191126001860-KMTJD

PATIENT
  Age: 47 Year
  Sex: Female

DRUGS (2)
  1. SERTRALINE [Suspect]
     Active Substance: SERTRALINE HYDROCHLORIDE
     Indication: Social anxiety disorder
     Dosage: 50 MG, QD, TABLET (UNCOATED) (SINCE 15 YEARS)
     Route: 048
  2. SERTRALINE [Suspect]
     Active Substance: SERTRALINE HYDROCHLORIDE
     Dosage: 50 MG, QD, TABLET (UNCOATED)
     Route: 048

REACTIONS (2)
  - Maternal exposure during breast feeding [Unknown]
  - Anaemia [Recovered/Resolved]
